FAERS Safety Report 5833332-0 (Version None)
Quarter: 2008Q3

REPORT INFORMATION
  Report Type: 
  Country: None (occurrence: None)
  Receive Date: 20080804
  Receipt Date: 20080804
  Transmission Date: 20090109
  Serious: Yes (Other)
  Sender: FDA-Public Use
  Company Number: None

PATIENT
  Sex: Female
  Weight: 68.0396 kg

DRUGS (1)
  1. AVANDIA [Suspect]
     Indication: BLOOD GLUCOSE
     Dosage: 1 DAILY
     Dates: start: 20070101

REACTIONS (4)
  - FEAR [None]
  - FEELING ABNORMAL [None]
  - NAUSEA [None]
  - VOMITING [None]
